FAERS Safety Report 12854139 (Version 1)
Quarter: 2016Q4

REPORT INFORMATION
  Report Type: Spontaneous
  Country: US (occurrence: US)
  Receive Date: 20161017
  Receipt Date: 20161017
  Transmission Date: 20170207
  Serious: No
  Sender: FDA-Public Use
  Company Number: US-PFIZER INC-2016477769

PATIENT
  Age: 82 Year
  Sex: Male
  Weight: 100 kg

DRUGS (12)
  1. GLIMEPIRIDE. [Suspect]
     Active Substance: GLIMEPIRIDE
     Dosage: 2 MG, 2X/DAY, ONE IN THE MORNING AND ONE AT NIGHT BEFORE HE GOES TO BED
     Route: 048
  2. JANUVIA [Suspect]
     Active Substance: SITAGLIPTIN PHOSPHATE
     Dosage: 100 MG, 1X/DAY
     Route: 048
  3. RAMIPRIL. [Suspect]
     Active Substance: RAMIPRIL
     Dosage: 10 MG, DAILY, IN THE MORNING
     Route: 048
  4. WARFARIN [Suspect]
     Active Substance: WARFARIN
     Dosage: 7.5 MG, SUNDAY, TUESDAY, THURSDAY, AND SATURDAY
     Route: 048
  5. PRAVASTATIN. [Suspect]
     Active Substance: PRAVASTATIN
     Dosage: 80 MG, 1X/DAY, BEFORE HE GOES TO BED
     Route: 048
  6. ROBITUSSIN COUGH AND CHEST CONGESTION DM MAX [Suspect]
     Active Substance: DEXTROMETHORPHAN HYDROBROMIDE\GUAIFENESIN
     Indication: COUGH
  7. TRAZODONE [Suspect]
     Active Substance: TRAZODONE HYDROCHLORIDE
     Dosage: 50 MG, 1X/DAY, BEFORE HE GOES TO BED
     Route: 048
  8. BYSTOLIC [Suspect]
     Active Substance: NEBIVOLOL HYDROCHLORIDE
     Dosage: 10 MG, 1X/DAY, BEFORE HE GOES TO BED
     Route: 048
  9. WARFARIN [Suspect]
     Active Substance: WARFARIN
     Dosage: 5 MG, ON MONDAY, WEDNESDAY, AND FRIDAY
     Route: 048
  10. ROBITUSSIN COUGH AND CHEST CONGESTION DM MAX [Suspect]
     Active Substance: DEXTROMETHORPHAN HYDROBROMIDE\GUAIFENESIN
     Indication: RESPIRATORY TRACT CONGESTION
     Dosage: 10 UNK, EVERY 4 HRS
     Route: 048
     Dates: start: 20161010, end: 20161010
  11. DIGOXIN. [Suspect]
     Active Substance: DIGOXIN
     Dosage: 0.125 MG, IN THE MORNING
     Route: 048
  12. MYRBETRIQ [Suspect]
     Active Substance: MIRABEGRON
     Dosage: 50 MG, DAILY
     Route: 048

REACTIONS (1)
  - Diarrhoea [Unknown]

NARRATIVE: CASE EVENT DATE: 20161011
